FAERS Safety Report 14483232 (Version 2)
Quarter: 2018Q1

REPORT INFORMATION
  Report Type: Spontaneous
  Country: US (occurrence: US)
  Receive Date: 20180204
  Receipt Date: 20180219
  Transmission Date: 20180509
  Serious: No
  Sender: FDA-Public Use
  Company Number: US-JNJFOC-20180109613

PATIENT
  Age: 40 Year
  Sex: Female

DRUGS (7)
  1. TYLENOL EXTRA STRENGTH [Suspect]
     Active Substance: ACETAMINOPHEN
     Indication: PYREXIA
     Dosage: 2 CAPLETS EVERY 4-5 HOURS AS NEEDED
     Route: 048
     Dates: start: 20180102, end: 20180108
  2. TYLENOL EXTRA STRENGTH [Suspect]
     Active Substance: ACETAMINOPHEN
     Indication: OROPHARYNGEAL PAIN
     Dosage: 2 CAPLETS EVERY 4-5 HOURS AS NEEDED
     Route: 048
     Dates: start: 20180102, end: 20180108
  3. TYLENOL EXTRA STRENGTH [Suspect]
     Active Substance: ACETAMINOPHEN
     Indication: PAIN
     Dosage: 2 CAPLETS EVERY 4-5 HOURS AS NEEDED
     Route: 048
     Dates: start: 20180102, end: 20180108
  4. TYLENOL EXTRA STRENGTH [Suspect]
     Active Substance: ACETAMINOPHEN
     Indication: NASOPHARYNGITIS
     Dosage: 2 CAPLETS EVERY 4-5 HOURS AS NEEDED
     Route: 048
     Dates: start: 20180102, end: 20180108
  5. TYLENOL EXTRA STRENGTH [Suspect]
     Active Substance: ACETAMINOPHEN
     Indication: SINUS OPERATION
     Dosage: 2 CAPLETS EVERY 4-5 HOURS AS NEEDED
     Route: 048
     Dates: start: 20180102, end: 20180108
  6. HALLS [Concomitant]
     Active Substance: MENTHOL
     Indication: COUGH
     Route: 065
  7. TYLENOL EXTRA STRENGTH [Suspect]
     Active Substance: ACETAMINOPHEN
     Indication: INFLUENZA
     Dosage: 2 CAPLETS EVERY 4-5 HOURS AS NEEDED
     Route: 048
     Dates: start: 20180102, end: 20180108

REACTIONS (3)
  - Dry mouth [Recovering/Resolving]
  - Swelling face [Recovering/Resolving]
  - Product use in unapproved indication [Unknown]

NARRATIVE: CASE EVENT DATE: 201801
